FAERS Safety Report 5585445-9 (Version None)
Quarter: 2008Q1

REPORT INFORMATION
  Report Type: 
  Country: None (occurrence: None)
  Receive Date: 20080102
  Receipt Date: 20080102
  Transmission Date: 20080703
  Serious: Yes (Hospitalization)
  Sender: FDA-Public Use
  Company Number: None

PATIENT
  Age: 48 Year

DRUGS (2)
  1. NAPROXEN [Suspect]
     Indication: PAIN
     Dosage: 250MG TID PO
     Route: 048
     Dates: start: 20070827, end: 20071121
  2. DEXAMETHASONE TAB [Suspect]
     Dosage: 20MG UD IV
     Route: 042
     Dates: start: 20071128, end: 20071128

REACTIONS (4)
  - MALLORY-WEISS SYNDROME [None]
  - NAUSEA [None]
  - UPPER GASTROINTESTINAL HAEMORRHAGE [None]
  - VOMITING [None]
